FAERS Safety Report 9678746 (Version 1)
Quarter: 2013Q4

REPORT INFORMATION
  Report Type: Spontaneous
  Country: US (occurrence: US)
  Receive Date: 20131108
  Receipt Date: 20131108
  Transmission Date: 20140711
  Serious: Yes (Life-Threatening)
  Sender: FDA-Public Use
  Company Number: US-B.I. PHARMACEUTICALS,INC./RIDGEFIELD-2013-BI-36161BP

PATIENT
  Sex: Male

DRUGS (1)
  1. AGGRENOX [Suspect]
     Dosage: STRENGTH: 25 MG / 200 MG
     Route: 048

REACTIONS (1)
  - Cerebrovascular accident [Unknown]
